FAERS Safety Report 5805944-1 (Version None)
Quarter: 2008Q3

REPORT INFORMATION
  Report Type: 
  Country: None (occurrence: None)
  Receive Date: 20080710
  Receipt Date: 20080701
  Transmission Date: 20090109
  Serious: Yes (Hospitalization)
  Sender: FDA-Public Use
  Company Number: US-ROCHE-573376

PATIENT
  Age: 88 Year
  Sex: Female

DRUGS (10)
  1. BONIVA [Suspect]
     Indication: OSTEOPENIA
     Dosage: PATIENT HAD BEEN TAKING IBANDRONIC ACID ^SINCE IT STARTED^.
     Route: 048
     Dates: end: 20080125
  2. BONIVA [Suspect]
     Route: 048
     Dates: start: 20080401
  3. NORVASC [Concomitant]
  4. ZOCOR [Concomitant]
  5. NADOLOL [Concomitant]
  6. TRICOR [Concomitant]
  7. ASPIRIN [Concomitant]
  8. NEXIUM [Concomitant]
  9. 1 CONCOMITANT DRUG [Concomitant]
     Dosage: DRUG REPORTED AS: AVIAN
  10. PATANOL [Concomitant]

REACTIONS (6)
  - ANAEMIA [None]
  - DENTAL CARIES [None]
  - DRY MOUTH [None]
  - HYPOXIA [None]
  - PNEUMONIA [None]
  - POSTNASAL DRIP [None]
